FAERS Safety Report 5922415-2 (Version None)
Quarter: 2008Q4

REPORT INFORMATION
  Report Type: 
  Country: None (occurrence: None)
  Receive Date: 20081017
  Receipt Date: 20081006
  Transmission Date: 20090506
  Serious: No
  Sender: FDA-Public Use
  Company Number: PT-EISAI MEDIAL RESEARCH-E3810-02017-SPO-PT

PATIENT
  Sex: Female
  Weight: 62 kg

DRUGS (3)
  1. RABEPRAZOLE SODIUM [Suspect]
     Indication: GASTROOESOPHAGEAL REFLUX DISEASE
     Dosage: 1 DOSE
     Route: 048
     Dates: start: 20071101, end: 20080701
  2. RABEPRAZOLE SODIUM [Suspect]
     Dosage: 1 DOSE
     Route: 048
     Dates: end: 20071001
  3. ZARATOR [Concomitant]
     Route: 048

REACTIONS (2)
  - HYPOGLYCAEMIA [None]
  - MOUTH ULCERATION [None]
